FAERS Safety Report 23682284 (Version 2)
Quarter: 2024Q3

REPORT INFORMATION
  Report Type: Spontaneous
  Country: CA (occurrence: CA)
  Receive Date: 20240328
  Receipt Date: 20240715
  Transmission Date: 20241016
  Serious: Yes (Other)
  Sender: TAKEDA
  Company Number: CA-TAKEDA-2024TUS028066

PATIENT
  Sex: Female

DRUGS (1)
  1. GAMMAGARD LIQUID [Suspect]
     Active Substance: HUMAN IMMUNOGLOBULIN G
     Indication: Product used for unknown indication
     Dosage: 200 MILLILITER
     Route: 042

REACTIONS (7)
  - Arthralgia [Unknown]
  - Back pain [Unknown]
  - Blood pressure increased [Unknown]
  - Chills [Unknown]
  - Febrile nonhaemolytic transfusion reaction [Unknown]
  - Flushing [Unknown]
  - Blood pressure abnormal [Unknown]

NARRATIVE: CASE EVENT DATE: 20231006
